FAERS Safety Report 18218409 (Version 1)
Quarter: 2020Q3

REPORT INFORMATION
  Report Type: Spontaneous
  Country: US (occurrence: US)
  Receive Date: 20200828
  Receipt Date: 20200828
  Transmission Date: 20201103
  Serious: No
  Sender: FDA-Public Use
  Company Number: None

PATIENT
  Age: 43 Year
  Sex: Male

DRUGS (1)
  1. SOFOSB/VELPAT TAB 100?400MG [Suspect]
     Active Substance: SOFOSBUVIR\VELPATASVIR
     Indication: HEPATITIS C
     Dosage: ?          OTHER DOSE:400?100MG ;?
     Route: 048
     Dates: start: 202006

REACTIONS (6)
  - Diarrhoea [None]
  - Dry mouth [None]
  - Asthenia [None]
  - Dizziness [None]
  - Tremor [None]
  - Fatigue [None]

NARRATIVE: CASE EVENT DATE: 20200731
